FAERS Safety Report 8690851 (Version 2)
Quarter: 2013Q4

REPORT INFORMATION
  Report Type: Spontaneous
  Country: US (occurrence: US)
  Receive Date: 20120729
  Receipt Date: 20131101
  Transmission Date: 20140711
  Serious: No
  Sender: FDA-Public Use
  Company Number: US-009507513-1207USA003764

PATIENT
  Age: 25 Year
  Sex: Female

DRUGS (1)
  1. NEXPLANON [Suspect]
     Indication: CONTRACEPTION
     Dosage: UNK
     Route: 059
     Dates: start: 20120706, end: 20120709

REACTIONS (6)
  - Implant site pruritus [Recovering/Resolving]
  - Implant site pain [Recovering/Resolving]
  - Implant site erythema [Recovering/Resolving]
  - Implant site swelling [Recovering/Resolving]
  - Implant site reaction [Recovering/Resolving]
  - Alopecia [Recovering/Resolving]
